FAERS Safety Report 9525062 (Version 1)
Quarter: 2013Q1

REPORT INFORMATION
  Report Type: Spontaneous
  Country: US (occurrence: None)
  Receive Date: 20130313
  Receipt Date: 20130313
  Transmission Date: 20140127
  Serious: No
  Sender: FDA-Public Use
  Company Number: 1000030338

PATIENT
  Age: 76 Year
  Sex: Female

DRUGS (6)
  1. SAVELLA (MILNACIPRAN HYDROCHLORIDE) (100 MILLIGRAM, TABLETS) [Suspect]
     Indication: FIBROMYALGIA
     Route: 048
     Dates: start: 20120201, end: 20120329
  2. ZONISAMIDE (ZONISAMIDE) [Concomitant]
  3. COREG (CARVEDILOL) [Concomitant]
  4. LISINOPRIL [Concomitant]
  5. SYNTHROID (LEVOTHYROXINE SODIUM) [Concomitant]
  6. VITAMINS (NOS) (VITAMINS NOS) [Concomitant]

REACTIONS (6)
  - Overdose [None]
  - Headache [None]
  - Neck pain [None]
  - Pain in extremity [None]
  - Diaphragmatic disorder [None]
  - Salivary gland pain [None]
